FAERS Safety Report 16936193 (Version 2)
Quarter: 2020Q1

REPORT INFORMATION
  Report Type: Spontaneous
  Country: US (occurrence: US)
  Receive Date: 20191018
  Receipt Date: 20200120
  Transmission Date: 20200409
  Serious: No
  Sender: FDA-Public Use
  Company Number: US-INSMED, INC.-US-INS-19-03153

PATIENT
  Age: 68 Year
  Sex: Female
  Weight: 58.51 kg

DRUGS (2)
  1. ARIKAYCE [Suspect]
     Active Substance: AMIKACIN
     Indication: MYCOBACTERIAL INFECTION
     Route: 055
     Dates: start: 20190822, end: 201908
  2. LAMIRA NEBULIZER SYSTEM [Suspect]
     Active Substance: DEVICE

REACTIONS (2)
  - Adverse event [Unknown]
  - Aphonia [Unknown]

NARRATIVE: CASE EVENT DATE: 201908
